FAERS Safety Report 16417002 (Version 3)
Quarter: 2019Q2

REPORT INFORMATION
  Report Type: Spontaneous
  Country: FR (occurrence: FR)
  Receive Date: 20190611
  Receipt Date: 20190617
  Transmission Date: 20190711
  Serious: Yes (Hospitalization, Other)
  Sender: FDA-Public Use
  Company Number: FR-PFIZER INC-2019247325

PATIENT
  Age: 79 Year
  Sex: Female
  Weight: 56 kg

DRUGS (19)
  1. ALDACTONE [Suspect]
     Active Substance: SPIRONOLACTONE
     Dosage: UNK
  2. MIRTAZAPINE ARROW [Suspect]
     Active Substance: MIRTAZAPINE
     Indication: DEPRESSION
     Dosage: 30 MG, UNK
     Route: 048
     Dates: start: 201812, end: 20190325
  3. ANASTROZOLE. [Concomitant]
     Active Substance: ANASTROZOLE
     Dosage: 1 MG, UNK
     Route: 048
     Dates: start: 201601
  4. TRAMADOL BIOGARAN [Concomitant]
     Active Substance: TRAMADOL
     Dosage: 50 MG, UNK
     Route: 048
  5. CORDARONE [Suspect]
     Active Substance: AMIODARONE HYDROCHLORIDE
     Indication: ATRIAL FIBRILLATION
     Dosage: 200 MG, UNK
     Route: 048
     Dates: start: 201601, end: 20190319
  6. XARELTO [Concomitant]
     Active Substance: RIVAROXABAN
     Dosage: 20 MG, UNK
     Route: 065
     Dates: start: 201601
  7. IXPRIM [Concomitant]
     Active Substance: ACETAMINOPHEN\TRAMADOL HYDROCHLORIDE
     Dosage: 1 TO 2 TAB 3/DAYS
     Route: 065
  8. PROLIA [Concomitant]
     Active Substance: DENOSUMAB
     Indication: OSTEOPOROSIS POSTMENOPAUSAL
     Dosage: 60 MG, CYCLIC (Q6M)
     Route: 058
     Dates: start: 201902
  9. MIANSERINE ARROW [Suspect]
     Active Substance: MIANSERIN HYDROCHLORIDE
     Indication: DEPRESSION
     Dosage: 40 MG, UNK
     Route: 048
     Dates: start: 201812, end: 20190429
  10. LASILIX FAIBLE [Suspect]
     Active Substance: FUROSEMIDE
     Indication: HYPERTENSION
     Dosage: 20 MG, UNK
     Route: 048
     Dates: start: 201601, end: 20190318
  11. TRIATEC [RAMIPRIL] [Concomitant]
     Active Substance: RAMIPRIL
     Indication: HYPERTENSION
     Dosage: 1.25 MG, UNK
     Route: 048
     Dates: start: 201601
  12. SELOKEN [METOPROLOL TARTRATE] [Concomitant]
     Active Substance: METOPROLOL TARTRATE
     Dosage: 100 MG, UNK
     Route: 048
     Dates: start: 201601, end: 20190319
  13. VOGALIB [Concomitant]
     Active Substance: METOPIMAZINE
     Dosage: 22.5 MG, UNK
     Route: 048
     Dates: start: 201601
  14. PROKINYL LP [Concomitant]
     Dosage: 30 MG, UNK
     Route: 048
     Dates: start: 201601
  15. PARACETAMOL BIOGARAN [Concomitant]
     Active Substance: ACETAMINOPHEN
     Dosage: 500 MG, UNK
     Route: 048
     Dates: start: 201601
  16. MIANSERINE ARROW [Suspect]
     Active Substance: MIANSERIN HYDROCHLORIDE
     Dosage: UNK
  17. ALDACTONE [Suspect]
     Active Substance: SPIRONOLACTONE
     Indication: HYPERTENSION
     Dosage: 50 MG, UNK
     Route: 048
     Dates: start: 201601
  18. LANZOR [Concomitant]
     Active Substance: LANSOPRAZOLE
     Dosage: 30 MG, UNK
     Route: 048
     Dates: start: 201601
  19. LEVOTHYROX [Concomitant]
     Active Substance: LEVOTHYROXINE
     Dosage: 50 UG, UNK
     Route: 048
     Dates: start: 201601

REACTIONS (1)
  - Inappropriate antidiuretic hormone secretion [Recovered/Resolved]

NARRATIVE: CASE EVENT DATE: 20190315
